FAERS Safety Report 14366144 (Version 1)
Quarter: 2018Q1

REPORT INFORMATION
  Report Type: Spontaneous
  Country: GB (occurrence: GB)
  Receive Date: 20180109
  Receipt Date: 20180109
  Transmission Date: 20180509
  Serious: Yes (Hospitalization, Other)
  Sender: FDA-Public Use
  Company Number: GB-TORRENT-00015911

PATIENT
  Age: 43 Year
  Sex: Male
  Weight: 92 kg

DRUGS (2)
  1. LAMOTRIGINE. [Suspect]
     Active Substance: LAMOTRIGINE
     Indication: EPILEPSY
     Route: 048
     Dates: start: 20170401, end: 20171110
  2. AZELASTINE HYDROCHLORIDE. [Concomitant]
     Active Substance: AZELASTINE HYDROCHLORIDE
     Indication: PRODUCT USED FOR UNKNOWN INDICATION

REACTIONS (5)
  - Transferrin increased [Unknown]
  - Liver function test abnormal [Recovering/Resolving]
  - Nausea [Unknown]
  - Epilepsy [Unknown]
  - Malaise [Unknown]

NARRATIVE: CASE EVENT DATE: 20171102
